FAERS Safety Report 14753340 (Version 1)
Quarter: 2018Q2

REPORT INFORMATION
  Report Type: Spontaneous
  Country: US (occurrence: US)
  Receive Date: 20180412
  Receipt Date: 20180412
  Transmission Date: 20180711
  Serious: No
  Sender: FDA-Public Use
  Company Number: US-ALLERGAN-1724304US

PATIENT
  Sex: Female
  Weight: 58.96 kg

DRUGS (4)
  1. TRAMADOL. [Concomitant]
     Active Substance: TRAMADOL
     Indication: HEADACHE
     Dosage: UNK
     Route: 048
  2. FEMRING [Suspect]
     Active Substance: ESTRADIOL ACETATE
     Indication: HORMONE REPLACEMENT THERAPY
     Dosage: UNK, Q3MONTHS
     Route: 067
     Dates: start: 201609
  3. FEMRING [Suspect]
     Active Substance: ESTRADIOL ACETATE
     Dosage: UNK, Q3MONTHS
     Route: 067
     Dates: start: 201701
  4. FEMRING [Suspect]
     Active Substance: ESTRADIOL ACETATE
     Dosage: UNK, Q3MONTHS
     Route: 067
     Dates: start: 20170319

REACTIONS (1)
  - Drug ineffective [Unknown]
